FAERS Safety Report 4378064-3 (Version None)
Quarter: 2004Q2

REPORT INFORMATION
  Report Type: 
  Country: None (occurrence: None)
  Receive Date: 20040616
  Receipt Date: 20040608
  Transmission Date: 20050107
  Serious: Yes (Hospitalization, Other)
  Sender: FDA-Public Use
  Company Number: US-BRISTOL-MYERS SQUIBB COMPANY-12613360

PATIENT
  Age: 55 Year
  Sex: Female

DRUGS (1)
  1. DAIVONEX OINTMENT [Suspect]
     Indication: VITILIGO
     Route: 061
     Dates: start: 20040517, end: 20040530

REACTIONS (3)
  - ATRIAL FIBRILLATION [None]
  - GENERALISED ANXIETY DISORDER [None]
  - VENTRICULAR FIBRILLATION [None]
